FAERS Safety Report 8504511-9 (Version None)
Quarter: 2012Q3

REPORT INFORMATION
  Report Type: 
  Country: None (occurrence: None)
  Receive Date: 20120711
  Receipt Date: 20120709
  Transmission Date: 20120928
  Serious: Yes (Death)
  Sender: FDA-Public Use
  Company Number: CA-ROCHE-1086305

PATIENT
  Sex: Male
  Weight: 66.738 kg

DRUGS (2)
  1. INSULIN [Concomitant]
     Dates: end: 20120701
  2. AVASTIN [Suspect]
     Indication: SMALL INTESTINE CARCINOMA METASTATIC
     Route: 042
     Dates: start: 20120118, end: 20120607

REACTIONS (1)
  - DEATH [None]
